FAERS Safety Report 6260320-5 (Version None)
Quarter: 2009Q3

REPORT INFORMATION
  Report Type: 
  Country: None (occurrence: None)
  Receive Date: 20090708
  Receipt Date: 20090626
  Transmission Date: 20100115
  Serious: Yes (Other)
  Sender: FDA-Public Use
  Company Number: US-PFIZER INC-2009236622

PATIENT
  Sex: Male
  Weight: 74.83 kg

DRUGS (4)
  1. XANAX [Suspect]
     Indication: PANIC ATTACK
  2. XANAX [Suspect]
     Indication: ANXIETY
  3. NAPROXEN SODIUM [Concomitant]
     Dosage: UNK
  4. LEXAPRO [Concomitant]
     Dosage: 20 MG, 1X/DAY

REACTIONS (4)
  - MOVEMENT DISORDER [None]
  - NERVE INJURY [None]
  - SOMNOLENCE [None]
  - SURGERY [None]
